FAERS Safety Report 6075602-X (Version None)
Quarter: 2009Q1

REPORT INFORMATION
  Report Type: 
  Country: None (occurrence: None)
  Receive Date: 20090210
  Receipt Date: 20090202
  Transmission Date: 20090719
  Serious: Yes (Life-Threatening)
  Sender: FDA-Public Use
  Company Number: US025076

PATIENT
  Age: 74 Year
  Sex: Male

DRUGS (3)
  1. TRISENOX [Suspect]
     Indication: ACUTE MYELOID LEUKAEMIA
     Dosage: UNK INTRAVENOUS
     Route: 042
     Dates: start: 20081120, end: 20081123
  2. TRISENOX [Suspect]
     Indication: ACUTE MYELOID LEUKAEMIA
     Dosage: RESTARTED AT 50% DOSE (NOT PROVIDED) INTRAVENOUS
     Route: 042
     Dates: start: 20081127
  3. ARA-C [Concomitant]

REACTIONS (3)
  - AV DISSOCIATION [None]
  - HEPATIC FAILURE [None]
  - RENAL FAILURE [None]
